FAERS Safety Report 23755345 (Version 2)
Quarter: 2024Q2

REPORT INFORMATION
  Report Type: Spontaneous
  Country: JP (occurrence: JP)
  Receive Date: 20240418
  Receipt Date: 20240617
  Transmission Date: 20240715
  Serious: Yes (Hospitalization)
  Sender: FDA-Public Use
  Company Number: JP-BAYER-2024A048939

PATIENT
  Age: 74 Year
  Sex: Male
  Weight: 60 kg

DRUGS (1)
  1. XARELTO [Suspect]
     Active Substance: RIVAROXABAN
     Indication: Atrial fibrillation
     Dosage: UNK
     Route: 048

REACTIONS (8)
  - Duodenal ulcer haemorrhage [Recovering/Resolving]
  - Cardio-respiratory arrest [Recovering/Resolving]
  - Lactic acidosis [Recovering/Resolving]
  - Anaemia [Recovering/Resolving]
  - Thrombocytopenia [Recovering/Resolving]
  - Renal injury [Recovering/Resolving]
  - Shock haemorrhagic [Recovering/Resolving]
  - Splenic injury [Recovering/Resolving]
